FAERS Safety Report 9862378 (Version 1)
Quarter: 2014Q1

REPORT INFORMATION
  Report Type: Spontaneous
  Country: US (occurrence: None)
  Receive Date: 20140131
  Receipt Date: 20140131
  Transmission Date: 20141002
  Serious: No
  Sender: FDA-Public Use
  Company Number: None

PATIENT
  Age: 15 Year
  Sex: Female
  Weight: 43.5 kg

DRUGS (4)
  1. CYMBALTA [Suspect]
     Indication: PAIN
     Route: 048
     Dates: start: 20140114
  2. CYMBALTA [Suspect]
     Route: 048
     Dates: start: 20140114
  3. CYMBALTA [Suspect]
     Route: 048
     Dates: start: 20140114
  4. CYMBALTA [Suspect]
     Route: 048
     Dates: start: 20140114

REACTIONS (5)
  - Eye swelling [None]
  - Product substitution issue [None]
  - Reaction to colouring [None]
  - Therapy change [None]
  - Hypersensitivity [None]
